FAERS Safety Report 16791446 (Version 2)
Quarter: 2019Q3

REPORT INFORMATION
  Report Type: Spontaneous
  Country: US (occurrence: US)
  Receive Date: 20190910
  Receipt Date: 20190918
  Transmission Date: 20191005
  Serious: Yes (Hospitalization)
  Sender: FDA-Public Use
  Company Number: US-VERTEX PHARMACEUTICALS-2019-008515

PATIENT
  Age: 26 Year
  Sex: Female

DRUGS (14)
  1. TOBI [Concomitant]
     Active Substance: TOBRAMYCIN
  2. AMOXYCLAV [AMOXICILLIN TRIHYDRATE;CLAVULANATE POTASSIUM] [Concomitant]
  3. CLINDAMYCIN. [Concomitant]
     Active Substance: CLINDAMYCIN
  4. MEPHYTON [Concomitant]
     Active Substance: PHYTONADIONE
  5. CYPROHEPTADIN [Concomitant]
     Active Substance: CYPROHEPTADINE HYDROCHLORIDE
  6. ZYVOX [Concomitant]
     Active Substance: LINEZOLID
  7. PULMOZYME [Concomitant]
     Active Substance: DORNASE ALFA
  8. ADVAIR HFA [Concomitant]
     Active Substance: FLUTICASONE PROPIONATE\SALMETEROL XINAFOATE
  9. PANCREASE MT [Concomitant]
     Active Substance: PANCRELIPASE
  10. ZOVIRAX [Concomitant]
     Active Substance: ACYCLOVIR
  11. SYMDEKO [Suspect]
     Active Substance: IVACAFTOR\TEZACAFTOR
     Indication: CYSTIC FIBROSIS
     Dosage: 100MG TEZACAFTOR/ 150MG IVACAFTOR AM; 150MG IVACAFTOR PM TABLETS
     Route: 048
  12. ALBUTEROL [SALBUTAMOL] [Concomitant]
     Active Substance: ALBUTEROL
     Route: 055
  13. AZITHROMYCIN ANHYDROUS. [Concomitant]
     Active Substance: AZITHROMYCIN ANHYDROUS
  14. SMZ-TMP DS [Concomitant]
     Active Substance: SULFAMETHOXAZOLE\TRIMETHOPRIM

REACTIONS (1)
  - Infective pulmonary exacerbation of cystic fibrosis [Unknown]

NARRATIVE: CASE EVENT DATE: 201908
